FAERS Safety Report 11580323 (Version 1)
Quarter: 2015Q3

REPORT INFORMATION
  Report Type: Spontaneous
  Country: US (occurrence: US)
  Receive Date: 20150916
  Receipt Date: 20150916
  Transmission Date: 20151125
  Serious: No
  Sender: FDA-Public Use
  Company Number: US-ELI_LILLY_AND_COMPANY-US200804003873

PATIENT
  Age: 82 Year
  Sex: Female

DRUGS (8)
  1. NOVOLIN R [Concomitant]
     Active Substance: INSULIN HUMAN
  2. BENICAR [Concomitant]
     Active Substance: OLMESARTAN MEDOXOMIL
  3. FORTEO [Suspect]
     Active Substance: TERIPARATIDE
     Indication: OSTEOPOROSIS
     Dates: start: 200710
  4. BABY ASPIRIN [Concomitant]
     Active Substance: ASPIRIN
  5. VITAMINS [Concomitant]
     Active Substance: VITAMINS
  6. NOVOLIN N [Concomitant]
     Active Substance: INSULIN HUMAN
  7. PRESERVISION LUTEIN EYE VITA.+MIN.SUP.SOFTG. [Concomitant]
  8. ENABLEX                            /01760402/ [Concomitant]

REACTIONS (1)
  - Neovascular age-related macular degeneration [Not Recovered/Not Resolved]

NARRATIVE: CASE EVENT DATE: 200803
